FAERS Safety Report 9669310 (Version 1)
Quarter: 2013Q4

REPORT INFORMATION
  Report Type: Spontaneous
  Country: TR (occurrence: None)
  Receive Date: 20131101
  Receipt Date: 20131101
  Transmission Date: 20140711
  Serious: Yes (Hospitalization)
  Sender: FDA-Public Use
  Company Number: LEVE20130009

PATIENT
  Age: 10 Month
  Sex: Female

DRUGS (5)
  1. LEVETIRACETAM [Suspect]
     Indication: EARLY INFANTILE EPILEPTIC ENCEPHALOPATHY WITH BURST-SUPPRESSION
     Dosage: 300MG/KG/DAY
     Route: 048
  2. VIGABATRIN (VIGABATRIN) (UNKNOWN) (VIGABATRIN) [Concomitant]
  3. TOPIRAMATE (TOPIRAMATE) (UNKNOWN) (TOPIRAMATE) [Concomitant]
  4. CALCIUM FOLINATE (CALCIUM FOLINATE) (UNKNOWN) (CALCIUM FOLINATE) [Concomitant]
  5. VITAMIN B6 (PYRIDOXINE HYDROCHLORIDE) (UNKNOWN) (PYRIDOXINE HYDROCHLORIDE) [Concomitant]

REACTIONS (5)
  - Accidental overdose [None]
  - Dystonia [None]
  - Apathy [None]
  - Hypotonia [None]
  - Reflexes abnormal [None]
